FAERS Safety Report 18392936 (Version 2)
Quarter: 2020Q4

REPORT INFORMATION
  Report Type: Spontaneous
  Country: US (occurrence: US)
  Receive Date: 20201016
  Receipt Date: 20201102
  Transmission Date: 20210114
  Serious: Yes (Other)
  Sender: FDA-Public Use
  Company Number: US-GLENMARK PHARMACEUTICALS-2020GMK049991

PATIENT
  Age: 5 Month
  Sex: Female

DRUGS (17)
  1. HYDROCORTISONE BUTYRATE. [Suspect]
     Active Substance: HYDROCORTISONE BUTYRATE
     Indication: ADRENOGENITAL SYNDROME
     Dosage: 1 DOSAGE FORM, QD [A 5 MG HC TABLET IN WATER (5 ML)]
     Route: 065
  2. SODIUM CHLORIDE. [Concomitant]
     Active Substance: SODIUM CHLORIDE
     Indication: ADRENOGENITAL SYNDROME
  3. HYDROCORTISONE BUTYRATE. [Suspect]
     Active Substance: HYDROCORTISONE BUTYRATE
     Dosage: UNK, QD (DOSES RANGED BETWEEN 4.35 AND 5.8 MG/M2/DAY DIVIDED 3 TIMES DAILY [CRUSH THE TABLETS AND MA
     Route: 048
  4. HYDROCORTISONE BUTYRATE. [Suspect]
     Active Substance: HYDROCORTISONE BUTYRATE
     Dosage: 18.7 MILLIGRAM PER SQUARE METRE, QD (HYDROCORTISONE 1.3 MG 3 TIMES DAILY (18.7 MG/M2/DAY) USING A CO
     Route: 048
  5. HYDROCORTISONE BUTYRATE. [Suspect]
     Active Substance: HYDROCORTISONE BUTYRATE
     Dosage: 7.1 MILLIGRAM PER SQUARE METRE, QD (HER HYDROCORTISONE DOSE GRADUALLY INCREASED FROM 7.1 MG/M2/DAY T
     Route: 048
  6. HYDROCORTISONE BUTYRATE. [Suspect]
     Active Substance: HYDROCORTISONE BUTYRATE
     Dosage: 8.1 MILLIGRAM PER SQUARE METRE, QD (2 MG HYDROCORTISONE AT 6 AM, 1.75 MG AT NOON, 1.5 MG AT 6 PM, AN
     Route: 048
  7. HYDROCORTISONE BUTYRATE. [Suspect]
     Active Substance: HYDROCORTISONE BUTYRATE
     Dosage: 6.5 MILLIGRAM PER SQUARE METRE, QD (THE ENDOCRINOLOGIST ADVISED PARENTS TO INSTEAD CUT THE TABLETS I
     Route: 048
  8. HYDROCORTISONE BUTYRATE. [Suspect]
     Active Substance: HYDROCORTISONE BUTYRATE
     Dosage: 12.6 MILLIGRAM PER SQUARE METRE, QD (1.2 MG 3 TIMES A DAY (12.6 MG/M2/D) USING A COMPOUNDED 2-MG/ML
     Route: 048
  9. SODIUM CHLORIDE. [Concomitant]
     Active Substance: SODIUM CHLORIDE
     Indication: RENAL SALT-WASTING SYNDROME
     Dosage: UNK, QD (10.2 MEQ/KG)
     Route: 065
  10. HYDROCORTISONE BUTYRATE. [Suspect]
     Active Substance: HYDROCORTISONE BUTYRATE
     Dosage: 7.9 MILLIGRAM PER SQUARE METRE, QD (THE ENDOCRINOLOGIST ADVISED PARENTS TO INSTEAD CUT THE TABLETS I
     Route: 048
  11. FLUDROCORTISONE [Concomitant]
     Active Substance: FLUDROCORTISONE
     Indication: ADRENOGENITAL SYNDROME
     Dosage: 0.1 MILLIGRAM, QD
     Route: 065
  12. FLUDROCORTISONE [Concomitant]
     Active Substance: FLUDROCORTISONE
     Indication: RENAL SALT-WASTING SYNDROME
     Dosage: 0.05 MILLIGRAM, QD
     Route: 065
  13. HYDROCORTISONE BUTYRATE. [Suspect]
     Active Substance: HYDROCORTISONE BUTYRATE
     Dosage: UNK, QD (TABLETS THAT WERE QUARTERED AND GIVEN 3 TIMES DAILY)
     Route: 048
  14. HYDROCORTISONE BUTYRATE. [Suspect]
     Active Substance: HYDROCORTISONE BUTYRATE
     Indication: RENAL SALT-WASTING SYNDROME
     Dosage: 1 DOSAGE FORM, QD [A 10 MG HC TABLET IN WATER (10 ML)]
     Route: 065
  15. HYDROCORTISONE BUTYRATE. [Suspect]
     Active Substance: HYDROCORTISONE BUTYRATE
     Dosage: 12.2 MILLIGRAM PER SQUARE METRE, QD (HER HYDROCORTISONE DOSE GRADUALLY INCREASED FROM 7.1 MG/M2/DAY
     Route: 048
  16. HYDROCORTISONE BUTYRATE. [Suspect]
     Active Substance: HYDROCORTISONE BUTYRATE
     Dosage: 5.8 MILLIGRAM PER SQUARE METRE, QD (4 DOSES A DAY EVERY 6 HOURS STARTING AT 6 AM (5.8 MG/M2/D) [CRUS
     Route: 048
  17. HYDROCORTISONE BUTYRATE. [Suspect]
     Active Substance: HYDROCORTISONE BUTYRATE
     Dosage: 6.6 MILLIGRAM PER SQUARE METRE, QD (CRUSH THE TABLETS AND MAKE A SOLUTION IN WATER, THEN DRAW THE PR
     Route: 048

REACTIONS (5)
  - Adrenal suppression [Recovered/Resolved]
  - Hypertension [Recovering/Resolving]
  - Cushing^s syndrome [Recovering/Resolving]
  - Gastric ulcer [Unknown]
  - Wrong technique in product usage process [Unknown]
